FAERS Safety Report 4537697-1 (Version None)
Quarter: 2004Q4

REPORT INFORMATION
  Report Type: 
  Country: None (occurrence: None)
  Receive Date: 20041216
  Receipt Date: 20040810
  Transmission Date: 20050328
  Serious: Yes (Other)
  Sender: FDA-Public Use
  Company Number: HQWYE186111AUG04

PATIENT
  Age: 48 Year
  Sex: Male

DRUGS (7)
  1. EFFEXOR XR [Suspect]
     Dosage: SEE IMAGE
     Route: 048
     Dates: start: 20040709, end: 20040715
  2. EFFEXOR XR [Suspect]
     Dosage: SEE IMAGE
     Route: 048
     Dates: start: 20040716, end: 20040729
  3. EFFEXOR XR [Suspect]
     Dosage: SEE IMAGE
     Route: 048
     Dates: start: 20040730
  4. GLUCOPHAGE [Concomitant]
  5. GLUCOTROL XL [Concomitant]
  6. LIPITOR [Concomitant]
  7. LASIX [Concomitant]

REACTIONS (5)
  - DYSPNOEA [None]
  - LEUKOPLAKIA [None]
  - THROAT TIGHTNESS [None]
  - TONGUE DISCOLOURATION [None]
  - TONGUE ULCERATION [None]
